FAERS Safety Report 13711055 (Version 1)
Quarter: 2017Q3

REPORT INFORMATION
  Report Type: Spontaneous
  Country: None (occurrence: GB)
  Receive Date: 20170703
  Receipt Date: 20170703
  Transmission Date: 20171127
  Serious: Yes (Hospitalization)
  Sender: FDA-Public Use
  Company Number: GB-ALSI-201700192

PATIENT
  Age: 8 Decade
  Sex: Female

DRUGS (1)
  1. MEDICIAL GASEOUS OXYGEN [Suspect]
     Active Substance: OXYGEN
     Indication: PRODUCT USED FOR UNKNOWN INDICATION
     Route: 055

REACTIONS (3)
  - Accident [Unknown]
  - Thermal burn [Unknown]
  - Intentional product misuse [Unknown]
